FAERS Safety Report 7549153-7 (Version None)
Quarter: 2011Q2

REPORT INFORMATION
  Report Type: 
  Country: None (occurrence: None)
  Receive Date: 20110615
  Receipt Date: 20110531
  Transmission Date: 20111010
  Serious: Yes (Other)
  Sender: FDA-Public Use
  Company Number: PHHY2011US47253

PATIENT
  Sex: Female

DRUGS (7)
  1. WELLBUTRIN [Concomitant]
  2. FEMALE HORMONE [Concomitant]
  3. VITAMIN D [Concomitant]
  4. HYZAAR [Concomitant]
  5. RECLAST [Suspect]
     Route: 042
     Dates: start: 20110511
  6. DEXLANSOPRAZOLE [Concomitant]
  7. CALCIUM CARBONATE [Concomitant]
     Dosage: 1200 MG, UNK

REACTIONS (7)
  - MYALGIA [None]
  - PAIN [None]
  - ARTHRALGIA [None]
  - BLOOD POTASSIUM DECREASED [None]
  - MOVEMENT DISORDER [None]
  - DEHYDRATION [None]
  - MULTIPLE FRACTURES [None]
